FAERS Safety Report 6918576-9 (Version None)
Quarter: 2010Q3

REPORT INFORMATION
  Report Type: 
  Country: None (occurrence: None)
  Receive Date: 20100811
  Receipt Date: 20100224
  Transmission Date: 20110219
  Serious: Yes (Hospitalization, Other)
  Sender: FDA-Public Use
  Company Number: DE-ASTRAZENECA-2010SE08161

PATIENT
  Age: 28652 Day
  Sex: Female
  Weight: 76 kg

DRUGS (1)
  1. ARIMIDEX [Suspect]
     Indication: BREAST CANCER
     Route: 048
     Dates: start: 20070925, end: 20090601

REACTIONS (2)
  - ARTHRITIS [None]
  - GAIT DISTURBANCE [None]
